FAERS Safety Report 5644064-6 (Version None)
Quarter: 2008Q1

REPORT INFORMATION
  Report Type: 
  Country: None (occurrence: None)
  Receive Date: 20080226
  Receipt Date: 20080212
  Transmission Date: 20080703
  Serious: Yes (Hospitalization)
  Sender: FDA-Public Use
  Company Number: B0509211A

PATIENT
  Age: 86 Year
  Sex: Female

DRUGS (6)
  1. AUGMENTIN [Suspect]
     Indication: LUNG DISORDER
     Dosage: 1 GRAM (S) THREE TIMES PER DAY ORAL
     Route: 048
     Dates: start: 20080104, end: 20080111
  2. HEPARIN CALCIUM INJECTION (HEPARIN CALCIUM) [Suspect]
     Indication: THROMBOSIS PROPHYLAXIS
     Dosage: 2 ML TWICE PER DAY SUBCUTANEOUS
     Route: 058
     Dates: start: 20080103, end: 20080114
  3. FUROSEMIDE [Suspect]
     Indication: CARDIAC FAILURE
     Dosage: 60 MG PER DAY ORAL
     Route: 048
     Dates: start: 20080104, end: 20080111
  4. LYSINE ASPIRIN (FORMULATION UNKNOWN) (LYSINE ASPIRIN) [Suspect]
     Indication: ANGINA PECTORIS
     Dosage: 75 MG PER DAY ORAL
     Route: 048
     Dates: start: 20080104, end: 20080111
  5. RAMIPRIL [Concomitant]
  6. BISOPROLOL FUMARATE [Concomitant]

REACTIONS (2)
  - DISSEMINATED INTRAVASCULAR COAGULATION [None]
  - HEPARIN-INDUCED THROMBOCYTOPENIA [None]
